FAERS Safety Report 18437388 (Version 8)
Quarter: 2024Q4

REPORT INFORMATION
  Report Type: Report from Study
  Country: US (occurrence: US)
  Receive Date: 20201028
  Receipt Date: 20241205
  Transmission Date: 20250115
  Serious: Yes (Other)
  Sender: TAKEDA
  Company Number: US-TAKEDA-US202034455

PATIENT
  Age: 63 Year
  Sex: Female

DRUGS (3)
  1. HUMAN IMMUNOGLOBULIN G [Suspect]
     Active Substance: HUMAN IMMUNOGLOBULIN G
     Indication: Immunodeficiency common variable
     Dosage: UNK
  2. HUMAN IMMUNOGLOBULIN G [Suspect]
     Active Substance: HUMAN IMMUNOGLOBULIN G
     Indication: Primary immunodeficiency syndrome
  3. BENADRYL [Suspect]
     Active Substance: DIPHENHYDRAMINE HYDROCHLORIDE
     Indication: Product used for unknown indication
     Dosage: UNK

REACTIONS (14)
  - COVID-19 [Recovered/Resolved]
  - Upper-airway cough syndrome [Unknown]
  - Vision blurred [Recovered/Resolved]
  - Thyroid disorder [Unknown]
  - Emotional disorder [Unknown]
  - Poor quality sleep [Unknown]
  - Thyroid hormones increased [Unknown]
  - Dermatitis atopic [Unknown]
  - Tinnitus [Unknown]
  - Restless legs syndrome [Unknown]
  - Product dose omission issue [Unknown]
  - Sinusitis [Unknown]
  - Feeling abnormal [Unknown]
  - Fatigue [Unknown]

NARRATIVE: CASE EVENT DATE: 20241025
